FAERS Safety Report 7393220-8 (Version None)
Quarter: 2011Q2

REPORT INFORMATION
  Report Type: 
  Country: None (occurrence: None)
  Receive Date: 20110405
  Receipt Date: 20110323
  Transmission Date: 20111010
  Serious: Yes (Other)
  Sender: FDA-Public Use
  Company Number: FR-BIOGENIDEC-2010BI015494

PATIENT
  Sex: Male

DRUGS (4)
  1. DEPAMIDE [Concomitant]
  2. TYSABRI [Suspect]
     Indication: MULTIPLE SCLEROSIS
     Route: 042
     Dates: start: 20080121
  3. RISPERDAL [Concomitant]
  4. SEROPRAM [Concomitant]

REACTIONS (1)
  - THYMUS DISORDER [None]
